FAERS Safety Report 4826011-X (Version None)
Quarter: 2005Q4

REPORT INFORMATION
  Report Type: 
  Country: None (occurrence: None)
  Receive Date: 20051111
  Receipt Date: 20050802
  Transmission Date: 20060501
  Serious: Yes (Death, Other)
  Sender: FDA-Public Use
  Company Number: US-MERCK-0508USA01106

PATIENT
  Age: 68 Year
  Sex: Male
  Weight: 68 kg

DRUGS (9)
  1. VIOXX [Suspect]
     Indication: ARTHRITIS
     Route: 048
     Dates: start: 20020225, end: 20021201
  2. LEVAQUIN [Concomitant]
     Route: 048
  3. AVANDIA [Concomitant]
     Indication: DIABETES MELLITUS
     Route: 048
  4. NEPHROCAPS [Concomitant]
     Indication: RENAL DISORDER
     Route: 048
  5. ZYRTEC-D 12 HOUR [Concomitant]
     Route: 048
  6. AMARYL [Concomitant]
     Indication: DIABETES MELLITUS
     Route: 048
  7. PHOSLO [Concomitant]
     Indication: CONSTIPATION
     Route: 048
  8. NOVOLIN [Concomitant]
     Indication: DIABETES MELLITUS
     Route: 058
  9. TEQUIN [Concomitant]
     Route: 048

REACTIONS (5)
  - ABDOMINAL PAIN UPPER [None]
  - ACUTE MYOCARDIAL INFARCTION [None]
  - CARDIO-RESPIRATORY ARREST [None]
  - DEATH [None]
  - RENAL FAILURE CHRONIC [None]
